FAERS Safety Report 13139922 (Version 1)
Quarter: 2017Q1

REPORT INFORMATION
  Report Type: Spontaneous
  Country: US (occurrence: US)
  Receive Date: 20170123
  Receipt Date: 20170123
  Transmission Date: 20170428
  Serious: Yes (Hospitalization)
  Sender: FDA-Public Use
  Company Number: US-SMITH AND NEPHEW, INC-2016SMT01116

PATIENT
  Age: 44 Year
  Sex: Male
  Weight: 151.93 kg

DRUGS (4)
  1. REGRANEX [Suspect]
     Active Substance: BECAPLERMIN
     Indication: ULCER
     Dosage: UNK
     Dates: start: 201610, end: 2016
  2. OXYCODONE [Concomitant]
     Active Substance: OXYCODONE
  3. REGRANEX [Suspect]
     Active Substance: BECAPLERMIN
     Dosage: UNK, 2X/DAY
     Route: 061
     Dates: start: 20161213
  4. LISINOPRIL. [Concomitant]
     Active Substance: LISINOPRIL

REACTIONS (6)
  - Application site discolouration [Not Recovered/Not Resolved]
  - Osteomyelitis [Unknown]
  - Application site pain [Not Recovered/Not Resolved]
  - Inappropriate schedule of drug administration [Not Recovered/Not Resolved]
  - Wound secretion [Not Recovered/Not Resolved]
  - Skin graft [Unknown]

NARRATIVE: CASE EVENT DATE: 2016
